FAERS Safety Report 4944102-X (Version None)
Quarter: 2006Q1

REPORT INFORMATION
  Report Type: 
  Country: None (occurrence: None)
  Receive Date: 20060309
  Receipt Date: 20060228
  Transmission Date: 20060701
  Serious: Yes (Hospitalization)
  Sender: FDA-Public Use
  Company Number: HQWYE080501MAR06

PATIENT
  Age: 27 Year
  Sex: Female
  Weight: 59.02 kg

DRUGS (3)
  1. LODINE [Suspect]
     Indication: BACK INJURY
     Dosage: ORAL
     Route: 048
     Dates: start: 20060119, end: 20060122
  2. HYDROCODONE [Concomitant]
  3. MUSCLE RELAXANTS [Concomitant]

REACTIONS (2)
  - BILE DUCT STONE [None]
  - HEPATITIS [None]
